FAERS Safety Report 15691594 (Version 5)
Quarter: 2020Q2

REPORT INFORMATION
  Report Type: Report from Study
  Country: GB (occurrence: GB)
  Receive Date: 20181205
  Receipt Date: 20200422
  Transmission Date: 20200713
  Serious: Yes (Hospitalization)
  Sender: FDA-Public Use
  Company Number: GB-EISAI MEDICAL RESEARCH-EC-2018-043271

PATIENT
  Age: 58 Year
  Sex: Female
  Weight: 83.8 kg

DRUGS (16)
  1. EVEROLIMUS. [Suspect]
     Active Substance: EVEROLIMUS
     Route: 048
     Dates: start: 20180727, end: 20181106
  2. CITALOPRAM [Concomitant]
     Active Substance: CITALOPRAM HYDROBROMIDE
  3. HYDROXOCOBALAMIN [Concomitant]
     Active Substance: HYDROXOCOBALAMIN
  4. EVEROLIMUS. [Suspect]
     Active Substance: EVEROLIMUS
     Indication: METASTATIC RENAL CELL CARCINOMA
     Route: 048
     Dates: start: 20180517, end: 20180626
  5. ENSURE COMPACT LIQUID [Concomitant]
  6. LEVOTHYROXINE. [Concomitant]
     Active Substance: LEVOTHYROXINE
  7. AMLODIPINE [Concomitant]
     Active Substance: AMLODIPINE BESYLATE
  8. LENVATINIB [Suspect]
     Active Substance: LENVATINIB
     Indication: METASTATIC RENAL CELL CARCINOMA
     Route: 048
     Dates: start: 20180517, end: 20180626
  9. DEXAMETHASONE. [Concomitant]
     Active Substance: DEXAMETHASONE
  10. EVEROLIMUS. [Suspect]
     Active Substance: EVEROLIMUS
     Route: 048
     Dates: start: 20180719, end: 20180719
  11. LANSOPRAZOLE. [Concomitant]
     Active Substance: LANSOPRAZOLE
  12. FERROUS FUMERATE [Concomitant]
     Active Substance: FERROUS FUMARATE
  13. PREDNISOLONE. [Concomitant]
     Active Substance: PREDNISOLONE
  14. LOPERAMIDE [Concomitant]
     Active Substance: LOPERAMIDE
  15. LENVATINIB [Suspect]
     Active Substance: LENVATINIB
     Route: 048
     Dates: start: 20180719, end: 20181106
  16. FOLIC ACID. [Concomitant]
     Active Substance: FOLIC ACID

REACTIONS (3)
  - Hypokalaemia [Recovered/Resolved]
  - Anaemia [Recovered/Resolved]
  - Blood creatinine increased [Recovering/Resolving]

NARRATIVE: CASE EVENT DATE: 20180719
